FAERS Safety Report 10552801 (Version 1)
Quarter: 2014Q4

REPORT INFORMATION
  Report Type: Spontaneous
  Country: US (occurrence: US)
  Receive Date: 20141029
  Receipt Date: 20141029
  Transmission Date: 20150529
  Serious: No
  Sender: FDA-Public Use
  Company Number: US-MYLANLABS-2013S1028774

PATIENT
  Age: 57 Year
  Sex: Male
  Weight: 74.84 kg

DRUGS (1)
  1. RISPERIDONE TABLETS, USP [Suspect]
     Active Substance: RISPERIDONE
     Indication: BIPOLAR DISORDER
     Dosage: .5 MG,QD
     Route: 048
     Dates: start: 2008

REACTIONS (1)
  - Megacolon [Not Recovered/Not Resolved]

NARRATIVE: CASE EVENT DATE: 20131216
